FAERS Safety Report 25034226 (Version 1)
Quarter: 2025Q1

REPORT INFORMATION
  Report Type: Spontaneous
  Country: NO (occurrence: NO)
  Receive Date: 20250304
  Receipt Date: 20250304
  Transmission Date: 20250409
  Serious: Yes (Other)
  Sender: TAKEDA
  Company Number: NO-TAKEDA-2025TUS013475

PATIENT
  Age: 62 Year
  Sex: Male

DRUGS (19)
  1. HUMAN IMMUNOGLOBULIN G [Suspect]
     Active Substance: HUMAN IMMUNOGLOBULIN G
     Indication: Immune thrombocytopenia
  2. HUMAN IMMUNOGLOBULIN G [Suspect]
     Active Substance: HUMAN IMMUNOGLOBULIN G
  3. DEXAMETHASONE [Suspect]
     Active Substance: DEXAMETHASONE
     Indication: Immune thrombocytopenia
     Dosage: 40 MILLIGRAM, QD
  4. MYCOPHENOLATE MOFETIL [Suspect]
     Active Substance: MYCOPHENOLATE MOFETIL
     Indication: Immune thrombocytopenia
  5. ISOSORBIDE MONONITRATE [Concomitant]
     Active Substance: ISOSORBIDE MONONITRATE
  6. METOPROLOL [Concomitant]
     Active Substance: METOPROLOL
  7. COBALAMIN [Concomitant]
     Active Substance: COBALAMIN
  8. EZETIMIBE [Concomitant]
     Active Substance: EZETIMIBE
  9. LEVOTHYROXINE [Concomitant]
     Active Substance: LEVOTHYROXINE
  10. PANTOPRAZOLE [Concomitant]
     Active Substance: PANTOPRAZOLE
  11. CLOPIDOGREL [Concomitant]
     Active Substance: CLOPIDOGREL BISULFATE
  12. ASPIRIN [Concomitant]
     Active Substance: ASPIRIN
  13. PREDNISOLONE [Concomitant]
     Active Substance: PREDNISOLONE
     Dosage: 80 MILLIGRAM, QD
     Dates: start: 201503
  14. RITUXIMAB [Concomitant]
     Active Substance: RITUXIMAB
     Dosage: 800 MILLIGRAM, 1/WEEK
  15. PREDNISONE [Concomitant]
     Active Substance: PREDNISONE
     Dosage: 12.5 MILLIGRAM, QD
  16. PREDNISONE [Concomitant]
     Active Substance: PREDNISONE
     Dosage: 5 MILLIGRAM, QD
  17. FOSTAMATINIB [Concomitant]
     Active Substance: FOSTAMATINIB
     Dosage: 100 MILLIGRAM, BID
  18. ROMIPLOSTIM [Concomitant]
     Active Substance: ROMIPLOSTIM
     Dosage: 500 MILLIGRAM, Q2WEEKS
  19. ELTROMBOPAG [Concomitant]
     Active Substance: ELTROMBOPAG
     Dosage: 50 MILLIGRAM, QD

REACTIONS (2)
  - Drug ineffective [Unknown]
  - Therapy non-responder [Unknown]
